FAERS Safety Report 9423610 (Version 1)
Quarter: 2013Q3

REPORT INFORMATION
  Report Type: Spontaneous
  Country: US (occurrence: US)
  Receive Date: 20130726
  Receipt Date: 20130726
  Transmission Date: 20140515
  Serious: Yes (Other)
  Sender: FDA-Public Use
  Company Number: US-ASTRAZENECA-2013SE54818

PATIENT
  Age: 43 Year
  Sex: Female
  Weight: 80.7 kg

DRUGS (8)
  1. SEROQUEL [Suspect]
     Indication: NIGHTMARE
     Route: 048
  2. SEROQUEL [Suspect]
     Indication: SUICIDAL IDEATION
     Route: 048
  3. LYRICA (PFIZER) [Concomitant]
     Indication: FIBROMYALGIA
     Route: 048
  4. PRISTIQ [Concomitant]
     Indication: DEPRESSION
  5. SOMA [Concomitant]
     Indication: TREMOR
  6. HYDROCODONE [Concomitant]
     Indication: PAIN
     Dosage: 10/325 MG, AS NEEDED
  7. PRAVACHOL [Concomitant]
     Indication: BLOOD CHOLESTEROL INCREASED
  8. KLONOPIN [Concomitant]
     Indication: ANXIETY
     Dosage: 1 MG AS NEEDED UPTO 3 TIMES A DAY

REACTIONS (23)
  - Suicidal ideation [Unknown]
  - Ovarian cyst [Unknown]
  - Thinking abnormal [Unknown]
  - Depressed mood [Unknown]
  - Depression [Not Recovered/Not Resolved]
  - Post-traumatic stress disorder [Not Recovered/Not Resolved]
  - Bipolar disorder [Unknown]
  - Amnesia [Unknown]
  - Fibromyalgia [Unknown]
  - Mitral valve prolapse [Not Recovered/Not Resolved]
  - Obsessive-compulsive disorder [Not Recovered/Not Resolved]
  - Mitral valve incompetence [Not Recovered/Not Resolved]
  - Menopause [Not Recovered/Not Resolved]
  - Primary hypothyroidism [Not Recovered/Not Resolved]
  - Anxiety [Not Recovered/Not Resolved]
  - Feeling abnormal [Unknown]
  - Sleep disorder due to a general medical condition [Unknown]
  - Activities of daily living impaired [Unknown]
  - Blood cholesterol increased [Not Recovered/Not Resolved]
  - Tremor [Not Recovered/Not Resolved]
  - Vision blurred [Not Recovered/Not Resolved]
  - Off label use [Unknown]
  - Drug ineffective for unapproved indication [Unknown]
